FAERS Safety Report 5322966-8 (Version None)
Quarter: 2007Q1

REPORT INFORMATION
  Report Type: 
  Country: None (occurrence: None)
  Receive Date: 20070220
  Receipt Date: 20061117
  Transmission Date: 20070707
  Serious: No
  Sender: FDA-Public Use
  Company Number: TPA2006A02069

PATIENT
  Age: 85 Year
  Sex: Male
  Weight: 78.0187 kg

DRUGS (8)
  1. ROZEREM [Suspect]
     Dosage: PER ORAL
     Route: 048
  2. LUNESTA [Concomitant]
  3. LOPRESSOR [Concomitant]
  4. VALSARTAN [Concomitant]
  5. TAMBOCOR [Concomitant]
  6. SIMVASTATIN [Concomitant]
  7. AMLODIPINE BESYLATE (AMLODIPINE BESILATE) [Concomitant]
  8. HYDROCHLOROTHIAZIDE [Concomitant]

REACTIONS (1)
  - DRUG INEFFECTIVE [None]
